FAERS Safety Report 5826543-1 (Version None)
Quarter: 2008Q3

REPORT INFORMATION
  Report Type: 
  Country: None (occurrence: None)
  Receive Date: 20080729
  Receipt Date: 20080721
  Transmission Date: 20090109
  Serious: Yes (Hospitalization)
  Sender: FDA-Public Use
  Company Number: US-ELI_LILLY_AND_COMPANY-US200803004978

PATIENT
  Sex: Female

DRUGS (11)
  1. BYETTA [Suspect]
     Indication: TYPE 2 DIABETES MELLITUS
     Dosage: 10 UG, 2/D
     Route: 058
     Dates: start: 20060522, end: 20080404
  2. BYETTA [Suspect]
     Dosage: 5 UG, 2/D
     Route: 058
     Dates: start: 20060301, end: 20060521
  3. LYRICA [Concomitant]
     Indication: NEUROPATHY PERIPHERAL
  4. DARVOCET /00220901/ [Concomitant]
     Indication: NEUROPATHY PERIPHERAL
  5. VITAMIN B-12 [Concomitant]
     Indication: ENERGY INCREASED
     Dosage: UNK, MONTHLY (1/M)
     Route: 058
  6. CALCIUM [Concomitant]
     Indication: MINERAL SUPPLEMENTATION
  7. ASPIRIN [Concomitant]
     Dosage: 325 MG, DAILY (1/D)
  8. VYTORIN [Concomitant]
     Indication: BLOOD CHOLESTEROL
  9. GLIPIZIDE [Concomitant]
     Indication: DIABETES MELLITUS
  10. FLUOXETINE [Concomitant]
     Indication: NERVOUSNESS
  11. KEFLEX [Concomitant]
     Dates: start: 20071024, end: 20071026

REACTIONS (9)
  - ACUTE SINUSITIS [None]
  - BLOOD GLUCOSE INCREASED [None]
  - COUGH [None]
  - DEHYDRATION [None]
  - GASTROENTERITIS [None]
  - PNEUMONIA [None]
  - RENAL FAILURE ACUTE [None]
  - URINARY TRACT INFECTION [None]
  - VOMITING [None]
